FAERS Safety Report 11061806 (Version 2)
Quarter: 2015Q2

REPORT INFORMATION
  Report Type: Report from Study
  Country: US (occurrence: US)
  Receive Date: 20150424
  Receipt Date: 20150513
  Transmission Date: 20150821
  Serious: Yes (Hospitalization)
  Sender: FDA-Public Use
  Company Number: US-SA-2015SA051752

PATIENT
  Age: 65 Year
  Sex: Male
  Weight: 83 kg

DRUGS (10)
  1. GLUCAGON. [Concomitant]
     Active Substance: GLUCAGON
     Dosage: 1 MG INJECTION KIT
     Route: 030
     Dates: start: 20131210
  2. ECOTRIN [Concomitant]
     Active Substance: ASPIRIN
     Dosage: STRENGTH: 325 MG , DELAYED REALEASE TABLET, WITH BREAKFAST
     Route: 048
     Dates: start: 20140123
  3. VITAMIN B12 [Concomitant]
     Active Substance: CYANOCOBALAMIN
     Dosage: STRENGTH: 250 MCG
     Route: 048
  4. ALTACE [Concomitant]
     Active Substance: RAMIPRIL
     Route: 048
     Dates: start: 20131210
  5. VITAMIN C [Concomitant]
     Active Substance: ASCORBIC ACID
     Dosage: STRENGTH: 1000 MG
     Route: 048
  6. FLOMAX [Concomitant]
     Active Substance: TAMSULOSIN HYDROCHLORIDE
     Dosage: STRENGTH: 0.4 MG, FORM: SUST. RELEASE CAPSULE.
     Route: 048
  7. CALCIUM CARBONATE. [Concomitant]
     Active Substance: CALCIUM CARBONATE
     Dosage: STRENGTH: 600 MG (1.5 GRAM)
     Route: 048
  8. LANTUS SOLOSTAR [Suspect]
     Active Substance: INSULIN GLARGINE
     Indication: TYPE 1 DIABETES MELLITUS
     Dosage: DOSE:20 UNIT(S)
     Route: 058
     Dates: start: 1980
  9. SOLOSTAR [Concomitant]
     Active Substance: DEVICE
     Indication: TYPE 1 DIABETES MELLITUS
     Route: 058
     Dates: start: 1980
  10. ZOLOFT [Concomitant]
     Active Substance: SERTRALINE HYDROCHLORIDE
     Dosage: STRENGTH: 100 MG
     Route: 048

REACTIONS (7)
  - Ischaemic stroke [Recovered/Resolved]
  - Dizziness [Recovered/Resolved]
  - Balance disorder [Unknown]
  - Memory impairment [Unknown]
  - Fall [Unknown]
  - Impaired driving ability [Not Recovered/Not Resolved]
  - General physical health deterioration [Unknown]

NARRATIVE: CASE EVENT DATE: 201401
